APPROVED DRUG PRODUCT: ULTRA-TECHNEKOW V4
Active Ingredient: TECHNETIUM TC-99M SODIUM PERTECHNETATE GENERATOR
Strength: 0.25-3 CI/GENERATOR
Dosage Form/Route: SOLUTION;INTRAVENOUS
Application: N017243 | Product #002
Applicant: CURIUM US LLC
Approved: Approved Prior to Jan 1, 1982 | RLD: No | RS: No | Type: DISCN